FAERS Safety Report 8992398 (Version 2)
Quarter: 2013Q1

REPORT INFORMATION
  Report Type: Spontaneous
  Country: CO (occurrence: CO)
  Receive Date: 20121231
  Receipt Date: 20130201
  Transmission Date: 20140127
  Serious: No
  Sender: FDA-Public Use
  Company Number: CO-JNJFOC-20121212980

PATIENT
  Age: 36 None
  Sex: Female
  Weight: 84 kg

DRUGS (4)
  1. XARELTO COMPRIMIDOS RECUBIERTOS [Suspect]
     Indication: POST THROMBOTIC SYNDROME
     Route: 048
     Dates: start: 20121115, end: 20121217
  2. XARELTO COMPRIMIDOS RECUBIERTOS [Suspect]
     Indication: EMBOLISM
     Route: 048
     Dates: start: 20121115, end: 20121217
  3. XARELTO COMPRIMIDOS RECUBIERTOS [Suspect]
     Indication: DEEP VEIN THROMBOSIS
     Route: 048
     Dates: start: 20121115, end: 20121217
  4. XARELTO COMPRIMIDOS RECUBIERTOS [Suspect]
     Indication: HYPERCOAGULATION
     Route: 048
     Dates: start: 20121115, end: 20121217

REACTIONS (4)
  - Chest pain [Unknown]
  - Metrorrhagia [Unknown]
  - Epistaxis [Unknown]
  - Headache [Unknown]
